FAERS Safety Report 23421264 (Version 1)
Quarter: 2024Q1

REPORT INFORMATION
  Report Type: Other
  Country: GB (occurrence: GB)
  Receive Date: 20240119
  Receipt Date: 20240119
  Transmission Date: 20240410
  Serious: Yes (Other)
  Sender: FDA-Public Use
  Company Number: None

PATIENT
  Age: 65 Year
  Sex: Female
  Weight: 69 kg

DRUGS (5)
  1. SERTRALINE [Suspect]
     Active Substance: SERTRALINE HYDROCHLORIDE
     Indication: Product used for unknown indication
     Dosage: 50 MILLIGRAM, QD (USE AS DIRECTED)
     Route: 065
     Dates: start: 20231012
  2. INHALERIN [Concomitant]
     Indication: Product used for unknown indication
     Dosage: UNK (INHALE ONE OR TWO PUFFS WHEN REQUIRED FOR BREAT.)
     Route: 055
     Dates: start: 20230222
  3. EZETIMIBE [Concomitant]
     Active Substance: EZETIMIBE
     Indication: Product used for unknown indication
     Dosage: 1 DOSAGE FORM, QD
     Route: 065
     Dates: start: 20231012
  4. SIMVASTATIN [Concomitant]
     Active Substance: SIMVASTATIN
     Indication: Product used for unknown indication
     Dosage: 1 DOSAGE FORM, QD (NIGHT)
     Route: 065
     Dates: start: 20230222, end: 20231023
  5. Tiogiva [Concomitant]
     Indication: Product used for unknown indication
     Dosage: 1 DOSAGE FORM, QD (REPLACE DEVICE EVERY .)
     Route: 055
     Dates: start: 20230222

REACTIONS (2)
  - Migraine [Recovered/Resolved]
  - Heart rate decreased [Unknown]
